FAERS Safety Report 9964149 (Version 2)
Quarter: 2014Q2

REPORT INFORMATION
  Report Type: Report from Study
  Country: US (occurrence: US)
  Receive Date: 20140305
  Receipt Date: 20140521
  Transmission Date: 20141212
  Serious: Yes (Death, Hospitalization, Other)
  Sender: FDA-Public Use
  Company Number: PHEH2014US004378

PATIENT
  Age: 44 Year
  Sex: Male

DRUGS (5)
  1. AFINITOR [Suspect]
     Indication: GLIOBLASTOMA MULTIFORME
     Dosage: 10 MG, QD
     Route: 048
  2. AFINITOR [Suspect]
     Indication: OFF LABEL USE
  3. VOTRIENT [Suspect]
     Indication: GLIOBLASTOMA MULTIFORME
     Dosage: 200 MG, UNK
     Dates: start: 20130320
  4. TARCEVA [Suspect]
  5. SODIUM PHENYLBUTYRATE [Suspect]

REACTIONS (6)
  - Malignant neoplasm progression [Fatal]
  - Generalised tonic-clonic seizure [Unknown]
  - Paresis [Unknown]
  - Hemianopia homonymous [Unknown]
  - Aphasia [Unknown]
  - Brain neoplasm [Unknown]
